FAERS Safety Report 6939309-6 (Version None)
Quarter: 2010Q3

REPORT INFORMATION
  Report Type: 
  Country: None (occurrence: None)
  Receive Date: 20100824
  Receipt Date: 20100817
  Transmission Date: 20110219
  Serious: Yes (Other)
  Sender: FDA-Public Use
  Company Number: US-KINGPHARMUSA00001-K201001051

PATIENT
  Age: 53 Year
  Sex: Female
  Weight: 126.98 kg

DRUGS (4)
  1. EMBEDA [Suspect]
     Indication: PAIN
     Dosage: 30 MG, BID
     Dates: start: 20100101, end: 20100716
  2. EMBEDA [Suspect]
     Indication: SACROILIITIS
  3. EMBEDA [Suspect]
     Indication: RADICULOPATHY
  4. MORPHINE SULFATE [Concomitant]
     Indication: BREAKTHROUGH PAIN
     Dosage: 15 MG, PRN

REACTIONS (3)
  - ANXIETY [None]
  - PANIC ATTACK [None]
  - SLEEP TERROR [None]
